FAERS Safety Report 21374128 (Version 1)
Quarter: 2022Q3

REPORT INFORMATION
  Report Type: Spontaneous
  Country: RU (occurrence: RU)
  Receive Date: 20220926
  Receipt Date: 20220926
  Transmission Date: 20221027
  Serious: Yes (Other)
  Sender: FDA-Public Use
  Company Number: RU-NOVARTISPH-NVSC2022RU215334

PATIENT
  Age: 7 Year

DRUGS (1)
  1. GLIVEC [Suspect]
     Active Substance: IMATINIB MESYLATE
     Indication: Fibrosarcoma
     Dosage: 400 MG, QD
     Route: 065

REACTIONS (3)
  - Neutropenia [Unknown]
  - Pyrexia [Unknown]
  - Product use in unapproved indication [Unknown]
